FAERS Safety Report 7876983-4 (Version None)
Quarter: 2011Q4

REPORT INFORMATION
  Report Type: 
  Country: None (occurrence: None)
  Receive Date: 20111031
  Receipt Date: 20111021
  Transmission Date: 20120403
  Serious: Yes (Other)
  Sender: FDA-Public Use
  Company Number: PHHY2011CH93642

PATIENT
  Age: 14 Year
  Sex: Female

DRUGS (3)
  1. PREDNISOLONE [Suspect]
     Dosage: 80 MG, QD
     Route: 048
  2. CORTICOSTEROIDS [Suspect]
     Dosage: 0.5 MG/KG, QD
     Route: 042
  3. METHYLPREDNISOLONE [Suspect]
     Indication: TUBULOINTERSTITIAL NEPHRITIS
     Dosage: 10 MG/KG FOR 3 DAYS
     Route: 042

REACTIONS (3)
  - UVEITIS [None]
  - OCULAR HYPERAEMIA [None]
  - EYE PAIN [None]
